FAERS Safety Report 13439108 (Version 3)
Quarter: 2017Q2

REPORT INFORMATION
  Report Type: Spontaneous
  Country: US (occurrence: US)
  Receive Date: 20170412
  Receipt Date: 20170425
  Transmission Date: 20170830
  Serious: Yes (Other)
  Sender: FDA-Public Use
  Company Number: US-ACTELION-A-NJ2017-152139

PATIENT
  Age: 71 Year
  Sex: Male

DRUGS (4)
  1. CLOBETASOL [Concomitant]
     Active Substance: CLOBETASOL
     Dosage: AS DIRECTED
  2. VALCHLOR [Suspect]
     Active Substance: MECHLORETHAMINE
     Dosage: UNK
     Route: 061
     Dates: start: 20170303
  3. VALCHLOR [Suspect]
     Active Substance: MECHLORETHAMINE
     Indication: MYCOSIS FUNGOIDES STAGE II
     Dosage: UNK, APPLY QD
     Route: 061
     Dates: start: 20141222, end: 201503
  4. TRIAMCINOLONE [Concomitant]
     Active Substance: TRIAMCINOLONE
     Dosage: UNK, APPLY BID
     Dates: start: 20141117, end: 201508

REACTIONS (5)
  - Disease progression [Unknown]
  - Application site pruritus [Unknown]
  - Product physical consistency issue [Unknown]
  - Mycosis fungoides [Unknown]
  - Application site erythema [Unknown]
